FAERS Safety Report 5094269-0 (Version None)
Quarter: 2006Q3

REPORT INFORMATION
  Report Type: 
  Country: None (occurrence: None)
  Receive Date: 20060831
  Receipt Date: 20060825
  Transmission Date: 20061208
  Serious: Yes (Other)
  Sender: FDA-Public Use
  Company Number: JP-JPN-A200603323

PATIENT
  Sex: Female

DRUGS (2)
  1. ZANTAC [Suspect]
     Route: 042
  2. TAXOL [Concomitant]
     Route: 042

REACTIONS (1)
  - SHOCK [None]
